FAERS Safety Report 6914675-6 (Version None)
Quarter: 2010Q3

REPORT INFORMATION
  Report Type: 
  Country: None (occurrence: None)
  Receive Date: 20100804
  Receipt Date: 20100720
  Transmission Date: 20110219
  Serious: Yes (Other)
  Sender: FDA-Public Use
  Company Number: AUR-APU-2010-01842

PATIENT
  Age: 78 Year
  Sex: Female

DRUGS (4)
  1. METOPROLOL 50MG [Suspect]
     Indication: HYPERTENSION
     Dosage: 50MG, BID, ORAL
     Route: 048
     Dates: start: 20100209, end: 20100306
  2. WELCHOL [Concomitant]
  3. CARDIZEM [Concomitant]
  4. DIOVAN [Concomitant]

REACTIONS (2)
  - BRONCHITIS [None]
  - DYSPNOEA [None]
